FAERS Safety Report 8068950-5 (Version None)
Quarter: 2012Q1

REPORT INFORMATION
  Report Type: 
  Country: None (occurrence: None)
  Receive Date: 20120125
  Receipt Date: 20120118
  Transmission Date: 20120608
  Serious: Yes (Other)
  Sender: FDA-Public Use
  Company Number: US-BAYER-2012-006414

PATIENT
  Age: 49 Year
  Sex: Female

DRUGS (2)
  1. YAZ [Suspect]
  2. YASMIN [Suspect]

REACTIONS (2)
  - DEEP VEIN THROMBOSIS [None]
  - INJURY [None]
